FAERS Safety Report 9363413 (Version 3)
Quarter: 2013Q3

REPORT INFORMATION
  Report Type: Spontaneous
  Country: US (occurrence: US)
  Receive Date: 20130624
  Receipt Date: 20130722
  Transmission Date: 20140515
  Serious: Yes (Death, Life-Threatening, Hospitalization, Disabling, Other)
  Sender: FDA-Public Use
  Company Number: US-009507513-1306USA007876

PATIENT
  Age: 49 Year
  Sex: Male

DRUGS (4)
  1. TEMODAR [Suspect]
     Indication: GLIOBLASTOMA MULTIFORME
     Dosage: UNK
     Route: 048
     Dates: start: 20130513
  2. INSULIN [Concomitant]
  3. DEXAMETHASONE [Concomitant]
  4. TRAMADOL HYDROCHLORIDE [Concomitant]
     Dosage: UNK, PRN

REACTIONS (4)
  - Death [Fatal]
  - Brain neoplasm malignant [Fatal]
  - Thrombosis [Fatal]
  - Constipation [Unknown]
